FAERS Safety Report 4784635-2 (Version None)
Quarter: 2005Q3

REPORT INFORMATION
  Report Type: 
  Country: None (occurrence: None)
  Receive Date: 20050930
  Receipt Date: 20050923
  Transmission Date: 20060218
  Serious: Yes (Death, Hospitalization)
  Sender: FDA-Public Use
  Company Number: US-MERCK-0509USA03822

PATIENT
  Age: 73 Year
  Sex: Male
  Weight: 70 kg

DRUGS (14)
  1. VIOXX [Suspect]
     Indication: RHEUMATOID ARTHRITIS
     Route: 048
     Dates: start: 20030101, end: 20040301
  2. TYLENOL (CAPLET) [Concomitant]
     Route: 065
  3. IBUPROFEN [Concomitant]
     Route: 065
  4. PREDNISONE [Concomitant]
     Route: 065
  5. TOBRADEX [Concomitant]
     Route: 065
  6. FUROSEMIDE [Concomitant]
     Route: 065
  7. SULFAMETHOXAZOLE AND TRIMETHOPRIM [Concomitant]
     Route: 065
  8. PREVACID [Concomitant]
     Route: 065
  9. HYDROCODONE BITARTRATE + ACETAMINOPHEN [Concomitant]
     Route: 065
  10. COZAAR [Concomitant]
     Route: 048
  11. TORSEMIDE [Concomitant]
     Route: 065
  12. LANOXIN [Concomitant]
     Route: 065
  13. TOPROL-XL [Concomitant]
     Route: 048
  14. HYTRIN [Concomitant]
     Route: 065

REACTIONS (11)
  - AORTIC VALVE STENOSIS [None]
  - ATRIAL FIBRILLATION [None]
  - BUNDLE BRANCH BLOCK LEFT [None]
  - CARDIAC FAILURE CONGESTIVE [None]
  - DEHYDRATION [None]
  - FLANK PAIN [None]
  - MYOCARDIAL INFARCTION [None]
  - RHEUMATOID ARTHRITIS [None]
  - VENTRICULAR DYSFUNCTION [None]
  - VENTRICULAR HYPERTROPHY [None]
  - WEIGHT DECREASED [None]
